FAERS Safety Report 23032448 (Version 3)
Quarter: 2023Q4

REPORT INFORMATION
  Report Type: Spontaneous
  Country: GB (occurrence: GB)
  Receive Date: 20231005
  Receipt Date: 20231017
  Transmission Date: 20240110
  Serious: Yes (Death, Other)
  Sender: FDA-Public Use
  Company Number: GB-MHRA-MED-202309201539188420-PGMNK

PATIENT
  Age: 62 Year
  Sex: Female
  Weight: 101 kg

DRUGS (2)
  1. PALBOCICLIB [Suspect]
     Active Substance: PALBOCICLIB
     Indication: Breast cancer
     Dosage: UNK
     Dates: start: 20201201
  2. FULVESTRANT [Concomitant]
     Active Substance: FULVESTRANT
     Indication: Malignant melanoma
     Dosage: UNK
     Dates: start: 20190414

REACTIONS (1)
  - Intracardiac thrombus [Fatal]

NARRATIVE: CASE EVENT DATE: 20230904
